FAERS Safety Report 8142884-X (Version None)
Quarter: 2012Q1

REPORT INFORMATION
  Report Type: 
  Country: None (occurrence: None)
  Receive Date: 20120217
  Receipt Date: 20120209
  Transmission Date: 20120608
  Serious: Yes (Hospitalization)
  Sender: FDA-Public Use
  Company Number: US-BIOGENIDEC-2011BI019334

PATIENT
  Age: 74 Year
  Sex: Female
  Weight: 56 kg

DRUGS (6)
  1. TYSABRI [Suspect]
     Indication: MULTIPLE SCLEROSIS
     Route: 042
     Dates: start: 20080109, end: 20110405
  2. TRAMADOL HCL [Concomitant]
     Route: 048
     Dates: start: 20110204
  3. LOVASTATIN [Concomitant]
     Route: 048
  4. IBUPROFEN [Concomitant]
  5. CLOPIDOGREL [Concomitant]
     Route: 048
  6. DIPHENHYDRAMINE-APAP [Concomitant]
     Route: 048

REACTIONS (1)
  - DECUBITUS ULCER [None]
